FAERS Safety Report 15155987 (Version 1)
Quarter: 2018Q3

REPORT INFORMATION
  Report Type: Spontaneous
  Country: US (occurrence: US)
  Receive Date: 20180717
  Receipt Date: 20180717
  Transmission Date: 20181010
  Serious: No
  Sender: FDA-Public Use
  Company Number: US-ENDO PHARMACEUTICALS INC-2018-039588

PATIENT
  Sex: Male

DRUGS (3)
  1. STRIANT [Suspect]
     Active Substance: TESTOSTERONE
     Indication: BLOOD TESTOSTERONE DECREASED
     Dosage: 90 MG, DAILY
     Route: 002
     Dates: start: 201803, end: 201805
  2. STRIANT [Suspect]
     Active Substance: TESTOSTERONE
     Dosage: 60 MG, DAILY
     Route: 002
     Dates: start: 201805
  3. STRIANT [Suspect]
     Active Substance: TESTOSTERONE
     Dosage: 60 MG, DAILY
     Route: 002
     Dates: start: 2014, end: 201803

REACTIONS (2)
  - Incorrect dose administered [Recovered/Resolved]
  - Feeling abnormal [Unknown]

NARRATIVE: CASE EVENT DATE: 201803
